FAERS Safety Report 18138253 (Version 2)
Quarter: 2021Q1

REPORT INFORMATION
  Report Type: Report from Study
  Country: None (occurrence: US)
  Receive Date: 20200812
  Receipt Date: 20210125
  Transmission Date: 20210419
  Serious: Yes (Death, Hospitalization)
  Sender: FDA-Public Use
  Company Number: US-INSMED, INC.-US-INS-20-01507

PATIENT
  Age: 87 Year
  Sex: Female

DRUGS (1)
  1. ARIKAYCE [Suspect]
     Active Substance: AMIKACIN
     Indication: MYCOBACTERIUM AVIUM COMPLEX INFECTION
     Route: 055
     Dates: start: 20191205

REACTIONS (3)
  - Death [Fatal]
  - Pneumonia [Unknown]
  - Dysphonia [Unknown]

NARRATIVE: CASE EVENT DATE: 2019
